FAERS Safety Report 19789942 (Version 1)
Quarter: 2021Q3

REPORT INFORMATION
  Report Type: Spontaneous
  Country: PK (occurrence: PK)
  Receive Date: 20210905
  Receipt Date: 20210905
  Transmission Date: 20211014
  Serious: Yes (Other)
  Sender: FDA-Public Use
  Company Number: PK-COOPERSURGICAL, INC.-PK-2021CPS002638

PATIENT
  Sex: Female

DRUGS (1)
  1. PARAGARD T 380A [Suspect]
     Active Substance: COPPER
     Indication: CONTRACEPTION
     Dosage: UNK
     Route: 015

REACTIONS (3)
  - Device dislocation [Recovered/Resolved]
  - Bladder injury [Recovered/Resolved]
  - Uterine perforation [Recovered/Resolved]
